FAERS Safety Report 19612612 (Version 4)
Quarter: 2021Q3

REPORT INFORMATION
  Report Type: Report from Study
  Country: KR (occurrence: KR)
  Receive Date: 20210727
  Receipt Date: 20210826
  Transmission Date: 20211014
  Serious: Yes (Death, Hospitalization)
  Sender: FDA-Public Use
  Company Number: KR-CELLTRION INC.-2021KR009909

PATIENT

DRUGS (23)
  1. NANOXEL M [Suspect]
     Active Substance: DOCETAXEL
     Dosage: 60MG/M2(=130MG) + N/S 250ML IV (NANOXEL WITH LEVEL?1 DR D/T NEUROPATHY), EVERY 3 WEEKS
     Route: 042
     Dates: start: 20210707, end: 20210707
  2. BISCANEN [Concomitant]
     Indication: PROPHYLAXIS
     Dosage: 250 MG, 1CAP PO TID
     Route: 048
     Dates: start: 20210717, end: 20210726
  3. HERZUMA [Suspect]
     Active Substance: TRASTUZUMAB-PKRB
     Indication: SALIVARY GLAND CANCER
     Dosage: 6MG/KG (=550MG) + N/S 250ML, EVERY 3 WEEKS
     Route: 042
     Dates: start: 20200805, end: 20210707
  4. HERZUMA [Suspect]
     Active Substance: TRASTUZUMAB-PKRB
     Dosage: 6MG/KG (=550MG) + N/S 250ML, EVERY 3 WEEKS
     Route: 042
     Dates: start: 20210707, end: 20210707
  5. CRESTOR [Concomitant]
     Active Substance: ROSUVASTATIN CALCIUM
     Indication: HYPERLIPIDAEMIA
     Dosage: 1 TAB QD
     Route: 048
     Dates: start: 201607
  6. XALACOM [Concomitant]
     Active Substance: LATANOPROST\TIMOLOL MALEATE
     Indication: GLAUCOMA
     Dosage: 1 DROP QD
     Route: 047
     Dates: start: 201007
  7. ALPHAGAN P [Concomitant]
     Active Substance: BRIMONIDINE TARTRATE
     Indication: GLAUCOMA
     Dosage: 1 DROP BID
     Route: 047
     Dates: start: 201007
  8. CITOPCIN [CIPROFLOXACIN HYDROCHLORIDE] [Concomitant]
     Indication: ANTIBIOTIC PROPHYLAXIS
     Dosage: 2 DF, PRN
     Route: 048
     Dates: start: 20200806
  9. CYMBALTA [Concomitant]
     Active Substance: DULOXETINE HYDROCHLORIDE
     Indication: PERIPHERAL SENSORY NEUROPATHY
     Dosage: 1 CAP BID
     Route: 048
     Dates: start: 20210707
  10. NEXORAZOLE [Concomitant]
     Indication: PROPHYLAXIS
     Dosage: 20 MG (1 TAB PO QD)
     Route: 048
     Dates: start: 20210717, end: 20210725
  11. NANOXEL M [Suspect]
     Active Substance: DOCETAXEL
     Dosage: 130 (THERAPY DURATION: 232)
     Route: 042
     Dates: start: 20201209, end: 20210728
  12. LASIX [Concomitant]
     Active Substance: FUROSEMIDE
     Indication: OEDEMA
     Dosage: 1 TAB, BID
     Route: 048
     Dates: start: 20201209
  13. HERZUMA [Suspect]
     Active Substance: TRASTUZUMAB-PKRB
     Dosage: 550  (THERAPY DURATION: 358)
     Route: 042
     Dates: start: 20200805, end: 20210728
  14. HARTMANN^S SOLUTION [Concomitant]
     Active Substance: CALCIUM CHLORIDE\POTASSIUM CHLORIDE\SODIUM CHLORIDE\SODIUM LACTATE
     Indication: FLUID REPLACEMENT
     Dosage: 1BAG IV QD
     Route: 042
     Dates: start: 20210714, end: 20210717
  15. LYRICA [Concomitant]
     Active Substance: PREGABALIN
     Indication: PERIPHERAL SENSORY NEUROPATHY
     Dosage: 1 CAP, BID
     Route: 048
     Dates: start: 20201230
  16. DESOWEN [Concomitant]
     Active Substance: DESONIDE
     Indication: PRURITUS
     Dosage: (120 ML) APPLICATION ON SKIN
     Route: 061
     Dates: start: 20210303
  17. NANOXEL M [Suspect]
     Active Substance: DOCETAXEL
     Indication: SALIVARY GLAND CANCER
     Dosage: 60MG/M2(=130MG) + N/S 250ML IV (NANOXEL WITH LEVEL?1 DR D/T NEUROPATHY), EVERY 3 WEEKS
     Route: 042
     Dates: start: 20200805, end: 20210707
  18. ULTRACET ER SEMI [Concomitant]
     Indication: MYALGIA
     Dosage: 2 TAB, PRN
     Route: 048
     Dates: start: 20200806
  19. EBASTEL [Concomitant]
     Active Substance: EBASTINE
     Indication: RHINORRHOEA
     Dosage: 1 TAB PRN
     Route: 048
     Dates: start: 20210414
  20. MAROBIVEN A [Concomitant]
     Indication: PROPHYLAXIS
     Dosage: (0.5G/5ML) 2A IV QD
     Route: 042
     Dates: start: 20210714, end: 20210717
  21. NANOXEL M [Suspect]
     Active Substance: DOCETAXEL
     Dosage: 160 (THERAPY DURATION: 84)
     Route: 042
     Dates: start: 20200806, end: 20201028
  22. ESROBAN [Concomitant]
     Indication: RHINORRHOEA
     Dosage: APPLICATION ON NASAL
     Route: 045
     Dates: start: 20210414
  23. MOSAPRON [Concomitant]
     Indication: PROPHYLAXIS
     Dosage: 5.29 MG, 1TAB PO TID
     Route: 048
     Dates: start: 20210717, end: 20210726

REACTIONS (7)
  - Fall [Not Recovered/Not Resolved]
  - Vertigo [Recovered/Resolved]
  - Off label use [Unknown]
  - Dizziness [Not Recovered/Not Resolved]
  - Rib fracture [Not Recovered/Not Resolved]
  - Stomatitis [Recovering/Resolving]
  - Heat stroke [Fatal]

NARRATIVE: CASE EVENT DATE: 20210207
